FAERS Safety Report 16309742 (Version 1)
Quarter: 2019Q2

REPORT INFORMATION
  Report Type: Report from Study
  Country: FI (occurrence: FI)
  Receive Date: 20190514
  Receipt Date: 20190514
  Transmission Date: 20190711
  Serious: Yes (Hospitalization, Other)
  Sender: FDA-Public Use
  Company Number: FI-JNJFOC-20190507611

PATIENT
  Age: 51 Year
  Sex: Male

DRUGS (8)
  1. RAMIPRIL. [Concomitant]
     Active Substance: RAMIPRIL
     Dosage: 5 MG X 2
     Route: 065
  2. SPIRONOLACTONE. [Concomitant]
     Active Substance: SPIRONOLACTONE
     Dosage: 25 MG X 1
     Route: 065
  3. BISOPROLOL [Concomitant]
     Active Substance: BISOPROLOL
     Dosage: 5 MG X 1
     Route: 065
  4. KALCIPOS-D [Concomitant]
     Active Substance: CALCIUM CARBONATE\CHOLECALCIFEROL
     Dosage: 500 MG /400 IU X 2
     Route: 065
  5. VOXRA [Concomitant]
     Active Substance: BUPROPION HYDROCHLORIDE
     Dosage: 150 MG X 1
     Route: 065
  6. MIRTAZAPIN [Concomitant]
     Active Substance: MIRTAZAPINE
     Dosage: 7,5 MG X 1
     Route: 065
  7. STELARA [Suspect]
     Active Substance: USTEKINUMAB
     Indication: CROHN^S DISEASE
     Route: 058
     Dates: start: 20170109
  8. METFOREM [Concomitant]
     Active Substance: METFORMIN HYDROCHLORIDE
     Dosage: 750 MG X 2
     Route: 065

REACTIONS (1)
  - Erysipelas [Recovered/Resolved]

NARRATIVE: CASE EVENT DATE: 20180526
